FAERS Safety Report 8575437 (Version 3)
Quarter: 2012Q4

REPORT INFORMATION
  Report Type: 
  Country: US (occurrence: US)
  Receive Date: 20120523
  Receipt Date: 20121126
  Transmission Date: 20130627
  Serious: Yes (Hospitalization)
  Sender: FDA-Public Use
  Company Number: US-BAYER-2012-050148

PATIENT
  Age: 41 Year
  Sex: Female
  Weight: 144 kg

DRUGS (18)
  1. OCELLA [Suspect]
     Dosage: UNK
     Dates: start: 200810
  2. DIOVAN [Concomitant]
     Dosage: UNK
     Dates: start: 2006
  3. FLOVENT [Concomitant]
     Dosage: UNK
     Dates: start: 1976
  4. SINGULAIR [Concomitant]
     Dosage: UNK
     Dates: start: 1976
  5. ZOMIG [Concomitant]
     Dosage: UNK
     Dates: start: 2006
  6. IMITREX [Concomitant]
     Dosage: UNK
     Dates: start: 2010
  7. METOPROLOL [Concomitant]
     Dosage: UNK
     Dates: start: 2007
  8. NEURONTIN [Concomitant]
     Dosage: UNK
     Dates: start: 2006
  9. ELMIRON [Concomitant]
     Dosage: 200 mg, BID
  10. LEXAPRO [Concomitant]
     Dosage: UNK
  11. ZANTAC [Concomitant]
  12. PRILOSEC [Concomitant]
  13. FLONASE [Concomitant]
     Indication: ALLERGIC SINUSITIS
     Dosage: 2 puff(s), OM
     Route: 045
     Dates: start: 20090112
  14. FLONASE [Concomitant]
     Indication: ALLERGIC ASTHMA
  15. PREDNISONE [Concomitant]
     Indication: ALLERGIC SINUSITIS
     Dosage: 20 mg, daily
     Dates: start: 20090112
  16. PREDNISONE [Concomitant]
     Indication: ALLERGIC ASTHMA
  17. DOXYCYCLINE [Concomitant]
     Indication: ALLERGIC SINUSITIS
     Dosage: 100 mg, daily
     Dates: start: 20090112
  18. DOXYCYCLINE [Concomitant]
     Indication: ALLERGIC ASTHMA

REACTIONS (8)
  - Pulmonary embolism [None]
  - Deep vein thrombosis [None]
  - Pain [None]
  - Injury [None]
  - General physical health deterioration [None]
  - Anxiety [None]
  - Emotional distress [None]
  - Anhedonia [None]
